FAERS Safety Report 24238488 (Version 2)
Quarter: 2024Q3

REPORT INFORMATION
  Report Type: Spontaneous
  Country: BR (occurrence: BR)
  Receive Date: 20240822
  Receipt Date: 20240920
  Transmission Date: 20241016
  Serious: Yes (Other)
  Sender: TEVA
  Company Number: BR-TEVA-VS-3234951

PATIENT
  Age: 43 Year
  Sex: Male
  Weight: 89 kg

DRUGS (3)
  1. METHYLPHENIDATE [Suspect]
     Active Substance: METHYLPHENIDATE
     Indication: Attention deficit hyperactivity disorder
     Route: 048
     Dates: start: 202406
  2. TESTOSTERONE [Concomitant]
     Active Substance: TESTOSTERONE
     Indication: Hormone replacement therapy
  3. ESCITALOPRAM [Concomitant]
     Active Substance: ESCITALOPRAM OXALATE
     Indication: Product used for unknown indication
     Dosage: WHICH HE BELIEVED TO BE FROM THE LABORATORY MEDLEY

REACTIONS (4)
  - Retinal thickening [Unknown]
  - Intraocular pressure increased [Unknown]
  - Drug interaction [Unknown]
  - Vision blurred [Recovering/Resolving]

NARRATIVE: CASE EVENT DATE: 20240801
